FAERS Safety Report 12455145 (Version 1)
Quarter: 2016Q2

REPORT INFORMATION
  Report Type: Spontaneous
  Country: US (occurrence: None)
  Receive Date: 20160609
  Receipt Date: 20160609
  Transmission Date: 20160815
  Serious: Yes (Other)
  Sender: FDA-Public Use
  Company Number: None

PATIENT
  Age: 81 Year
  Sex: Male
  Weight: 71.22 kg

DRUGS (1)
  1. PREDNISOLONE ACETATE, 1% SANDOZ [Suspect]
     Active Substance: PREDNISOLONE ACETATE
     Route: 047
     Dates: start: 20160524, end: 20160525

REACTIONS (3)
  - Eye infection [None]
  - Pruritus [None]
  - Rash [None]

NARRATIVE: CASE EVENT DATE: 20160607
